FAERS Safety Report 11637550 (Version 2)
Quarter: 2015Q4

REPORT INFORMATION
  Report Type: Spontaneous
  Country: CH (occurrence: CH)
  Receive Date: 20151016
  Receipt Date: 20151022
  Transmission Date: 20160304
  Serious: Yes (Hospitalization)
  Sender: FDA-Public Use
  Company Number: CH-TEVA-600137ISR

PATIENT
  Age: 62 Year
  Sex: Female

DRUGS (9)
  1. DIPIPERON [Suspect]
     Active Substance: PIPAMPERONE
     Dosage: 60 MILLIGRAM DAILY;
     Route: 065
     Dates: start: 20150819
  2. LEPONEX [Concomitant]
     Active Substance: CLOZAPINE
     Dosage: 12.5 MILLIGRAM DAILY;
     Route: 048
     Dates: start: 20150811, end: 20150813
  3. LEPONEX [Concomitant]
     Active Substance: CLOZAPINE
     Dosage: 50 MILLIGRAM DAILY;
     Route: 048
     Dates: start: 20150816
  4. DIPIPERON [Suspect]
     Active Substance: PIPAMPERONE
     Dosage: 120 MILLIGRAM DAILY;
     Route: 065
     Dates: start: 20150801, end: 20150818
  5. ASPIRIN CARDIO 100 FILM TABLETS [Suspect]
     Active Substance: ASPIRIN
     Dosage: 100 MILLIGRAM DAILY;
     Route: 048
     Dates: start: 20150717
  6. LEPONEX [Concomitant]
     Active Substance: CLOZAPINE
     Dosage: 25 MILLIGRAM DAILY;
     Route: 048
     Dates: start: 20150814, end: 20150815
  7. DIPIPERON [Suspect]
     Active Substance: PIPAMPERONE
     Dosage: 80 MILLIGRAM DAILY;
     Route: 065
     Dates: start: 20150727, end: 20150731
  8. COMILORID-MEPHA MITE [Suspect]
     Active Substance: AMILORIDE HYDROCHLORIDE\HYDROCHLOROTHIAZIDE
     Dosage: 1 DOSAGE FORMS DAILY; 1DF= 2.5/25MG
     Route: 065
     Dates: start: 20150717
  9. DIPIPERON [Suspect]
     Active Substance: PIPAMPERONE
     Dosage: 60 MILLIGRAM DAILY;
     Route: 065
     Dates: start: 20150717, end: 20150727

REACTIONS (1)
  - Gait disturbance [Unknown]

NARRATIVE: CASE EVENT DATE: 20150818
